FAERS Safety Report 16566025 (Version 3)
Quarter: 2019Q3

REPORT INFORMATION
  Report Type: Spontaneous
  Country: US (occurrence: US)
  Receive Date: 20190712
  Receipt Date: 20190723
  Transmission Date: 20191004
  Serious: Yes (Other)
  Sender: FDA-Public Use
  Company Number: US-PFIZER INC-2019295725

PATIENT
  Age: 64 Year
  Sex: Male

DRUGS (2)
  1. CEFEPIME HCL [Suspect]
     Active Substance: CEFEPIME HYDROCHLORIDE
     Dosage: 2 G, UNK [EVERY 48 HOURS]
  2. CEFEPIME HCL [Suspect]
     Active Substance: CEFEPIME HYDROCHLORIDE
     Indication: INFECTION
     Dosage: 2 G, DAILY

REACTIONS (6)
  - Hallucination [Recovering/Resolving]
  - Delusion [Recovering/Resolving]
  - Disorganised speech [Recovering/Resolving]
  - Drug level abnormal [Unknown]
  - Renal failure [Unknown]
  - Overdose [Unknown]
